FAERS Safety Report 5098325-2 (Version None)
Quarter: 2006Q3

REPORT INFORMATION
  Report Type: 
  Country: None (occurrence: None)
  Receive Date: 20060906
  Receipt Date: 20060607
  Transmission Date: 20061208
  Serious: Yes (Other)
  Sender: FDA-Public Use
  Company Number: FR-BOEHRINGER INGELHEIM PHARMACEUTICALS, INC.-2006-FF-00439FF

PATIENT
  Sex: Male

DRUGS (4)
  1. MICARDIS [Suspect]
     Route: 048
     Dates: start: 20030101, end: 20060515
  2. SIMVASTATIN [Concomitant]
  3. CARDENSIEL [Concomitant]
     Route: 048
  4. PREVISCAN [Concomitant]
     Indication: ANTICOAGULANT THERAPY

REACTIONS (3)
  - BLADDER CANCER [None]
  - CYSTITIS NONINFECTIVE [None]
  - HAEMATURIA [None]
